FAERS Safety Report 21926535 (Version 1)
Quarter: 2023Q1

REPORT INFORMATION
  Report Type: Spontaneous
  Country: CA (occurrence: CA)
  Receive Date: 20230130
  Receipt Date: 20230130
  Transmission Date: 20230417
  Serious: Yes (Other)
  Sender: FDA-Public Use
  Company Number: CA-PFIZER INC-202300039616

PATIENT
  Age: 51 Year
  Sex: Male
  Weight: 108.8 kg

DRUGS (5)
  1. METHOTREXATE SODIUM [Suspect]
     Active Substance: METHOTREXATE SODIUM
     Dosage: UNK
  2. INFLECTRA [Concomitant]
     Active Substance: INFLIXIMAB-DYYB
     Indication: Colitis ulcerative
     Dosage: 5 MG/KG, WEEK 2 AND WEEK 6 AND EVERY 8 WEEKS
     Route: 042
     Dates: start: 20221111
  3. INFLECTRA [Concomitant]
     Active Substance: INFLIXIMAB-DYYB
     Dosage: 5 MG/KG, WEEK 2 AND WEEK 6 AND EVERY 8 WEEKS
     Route: 042
     Dates: start: 20221229
  4. INFLECTRA [Concomitant]
     Active Substance: INFLIXIMAB-DYYB
     Dosage: 5 MG/KG, WEEK 2 AND WEEK 6 AND EVERY 8 WEEKS
     Route: 042
     Dates: start: 20221229
  5. PREDNISONE [Concomitant]
     Active Substance: PREDNISONE
     Dosage: 10 MG, DAILY (WILL BE AT 5 MG/DAY FOR 1 WEEK)

REACTIONS (2)
  - Hepatitis [Not Recovered/Not Resolved]
  - Iron deficiency [Not Recovered/Not Resolved]
